FAERS Safety Report 17853587 (Version 3)
Quarter: 2020Q3

REPORT INFORMATION
  Report Type: Spontaneous
  Country: US (occurrence: US)
  Receive Date: 20200602
  Receipt Date: 20200824
  Transmission Date: 20201103
  Serious: Yes (Hospitalization)
  Sender: FDA-Public Use
  Company Number: US-AMGEN-USASP2020085655

PATIENT

DRUGS (2)
  1. KYPROLIS [Suspect]
     Active Substance: CARFILZOMIB
     Indication: PRODUCT USED FOR UNKNOWN INDICATION
     Dosage: 30 MILLIGRAM, CYCLE 1 DAY 1
     Route: 042
     Dates: start: 20200611, end: 2020
  2. KYPROLIS [Suspect]
     Active Substance: CARFILZOMIB
     Dosage: 104 MILLIGRAM, CYCLE 1 DAY 8, DAY 15 (DAY 1, 8, 15 EVERY 28 DAYS)
     Route: 042
     Dates: start: 2020

REACTIONS (1)
  - Hospitalisation [Unknown]

NARRATIVE: CASE EVENT DATE: 2020
